FAERS Safety Report 25805986 (Version 1)
Quarter: 2025Q3

REPORT INFORMATION
  Report Type: Spontaneous
  Country: CN (occurrence: CN)
  Receive Date: 20250916
  Receipt Date: 20250916
  Transmission Date: 20251020
  Serious: Yes (Other)
  Sender: BAXTER
  Company Number: None

PATIENT
  Age: 62 Year
  Sex: Female
  Weight: 51 kg

DRUGS (4)
  1. CYCLOPHOSPHAMIDE [Suspect]
     Active Substance: CYCLOPHOSPHAMIDE
     Indication: Breast cancer female
     Dosage: 0.8 G, EVERY 3 WK (1 DOSE IN 21 DAYS)
     Route: 041
     Dates: start: 20250901, end: 20250901
  2. SODIUM CHLORIDE [Suspect]
     Active Substance: SODIUM CHLORIDE
     Dosage: 500 ML, EVERY 3 WK, ONCE WITH CYCLOPHOSPHAMIDE)
     Route: 041
     Dates: start: 20250901, end: 20250901
  3. SODIUM CHLORIDE [Suspect]
     Active Substance: SODIUM CHLORIDE
     Dosage: 140 ML, EVERY 3 WK, ONCE WITH CYCLOPHOSPHAMIDE)
     Route: 041
     Dates: start: 20250901, end: 20250901
  4. EPIRUBICIN HYDROCHLORIDE [Suspect]
     Active Substance: EPIRUBICIN HYDROCHLORIDE
     Indication: Breast cancer female
     Dosage: 120 MG, EVERY 3 WK (1 DOSE IN EVERY 21 DAYS)
     Route: 041
     Dates: start: 20250901, end: 20250901

REACTIONS (1)
  - Myelosuppression [Unknown]

NARRATIVE: CASE EVENT DATE: 20250903
